FAERS Safety Report 6206567-5 (Version None)
Quarter: 2009Q2

REPORT INFORMATION
  Report Type: 
  Country: None (occurrence: None)
  Receive Date: 20090528
  Receipt Date: 20090525
  Transmission Date: 20091009
  Serious: Yes (Hospitalization)
  Sender: FDA-Public Use
  Company Number: FR-JNJFOC-20090505589

PATIENT
  Sex: Male

DRUGS (5)
  1. HALDOL [Suspect]
     Indication: PSYCHOTIC DISORDER
     Route: 048
  2. FLUPHENAZINE [Suspect]
     Indication: PSYCHOTIC DISORDER
     Route: 048
  3. MEPRONIZINE [Concomitant]
     Indication: PSYCHOTIC DISORDER
     Route: 048
  4. SURMONTIL [Concomitant]
     Indication: PSYCHOTIC DISORDER
     Route: 048
  5. LEPTICUR [Concomitant]
     Indication: PSYCHOTIC DISORDER
     Route: 048

REACTIONS (3)
  - DYSARTHRIA [None]
  - EXTRAPYRAMIDAL DISORDER [None]
  - HYPERTONIA [None]
